FAERS Safety Report 10970270 (Version 1)
Quarter: 2015Q1

REPORT INFORMATION
  Report Type: Spontaneous
  Country: US (occurrence: US)
  Receive Date: 20150331
  Receipt Date: 20150331
  Transmission Date: 20150721
  Serious: No
  Sender: FDA-Public Use
  Company Number: US-009507513-1503USA010881

PATIENT
  Age: 30 Year
  Sex: Female
  Weight: 111.11 kg

DRUGS (1)
  1. IMPLANON [Suspect]
     Active Substance: ETONOGESTREL
     Dosage: IMPLANT ROD; IN ARM
     Route: 059
     Dates: start: 201408

REACTIONS (1)
  - Back pain [Not Recovered/Not Resolved]
